FAERS Safety Report 8223983-0 (Version None)
Quarter: 2012Q1

REPORT INFORMATION
  Report Type: 
  Country: None (occurrence: None)
  Receive Date: 20120321
  Receipt Date: 20120315
  Transmission Date: 20120608
  Serious: Yes (Hospitalization)
  Sender: FDA-Public Use
  Company Number: PHEH2012US003556

PATIENT
  Sex: Female

DRUGS (12)
  1. MUCINEX [Concomitant]
     Dosage: UNK
  2. ALLEGRA [Concomitant]
     Dosage: UNK
  3. FLONASE [Concomitant]
     Dosage: UNK
  4. SERTRALINE HYDROCHLORIDE [Concomitant]
     Dosage: UNK
  5. METOPROLOL TARTRATE [Concomitant]
     Dosage: UNK
  6. ADALAT [Concomitant]
     Dosage: 90 MG, QD
  7. DIOVAN HCT [Suspect]
     Dosage: 320/25MG, QD
  8. PRAVASTATIN [Concomitant]
     Dosage: UNK
  9. CLONIDINE [Concomitant]
     Dosage: 0.3 MG, BID
  10. ALBUTEROL [Concomitant]
     Dosage: UNK
  11. SPIRONOLACTONE [Concomitant]
     Dosage: 25 MG, UNK
  12. ASPIRIN [Concomitant]
     Dosage: UNK

REACTIONS (4)
  - ASTHENIA [None]
  - BLOOD PRESSURE INADEQUATELY CONTROLLED [None]
  - MALAISE [None]
  - RESPIRATORY DISORDER [None]
